FAERS Safety Report 16165572 (Version 2)
Quarter: 2019Q2

REPORT INFORMATION
  Report Type: Spontaneous
  Country: US (occurrence: US)
  Receive Date: 20190405
  Receipt Date: 20190418
  Transmission Date: 20190711
  Serious: Yes (Life-Threatening, Other)
  Sender: FDA-Public Use
  Company Number: US-C B FLEET CO INC-201904-US-000832

PATIENT
  Sex: Female

DRUGS (2)
  1. GOODYS EXTRA STRENGTH [Suspect]
     Active Substance: ACETAMINOPHEN\ASPIRIN\CAFFEINE
     Indication: HEADACHE
     Dosage: 5 A DAY FOR YEARS
     Route: 048
  2. GOODYS EXTRA STRENGTH [Suspect]
     Active Substance: ACETAMINOPHEN\ASPIRIN\CAFFEINE
     Indication: BACK PAIN

REACTIONS (8)
  - Malaise [Unknown]
  - Inappropriate schedule of product administration [None]
  - Gastrointestinal haemorrhage [Unknown]
  - Incorrect product administration duration [None]
  - Haematemesis [Unknown]
  - Peptic ulcer [Not Recovered/Not Resolved]
  - Haematochezia [Unknown]
  - Overdose [None]
